FAERS Safety Report 19000075 (Version 3)
Quarter: 2021Q2

REPORT INFORMATION
  Report Type: Spontaneous
  Country: GB (occurrence: GB)
  Receive Date: 20210312
  Receipt Date: 20210510
  Transmission Date: 20210717
  Serious: No
  Sender: FDA-Public Use
  Company Number: GB-GW PHARMA-202103GBGW01053

PATIENT

DRUGS (5)
  1. EPIDYOLEX [Suspect]
     Active Substance: CANNABIDIOL
     Indication: SEVERE MYOCLONIC EPILEPSY OF INFANCY
     Dosage: UNK
     Route: 048
     Dates: start: 20190703, end: 2019
  2. EPIDYOLEX [Suspect]
     Active Substance: CANNABIDIOL
     Dosage: 14.3 MG/KG/DAY, 300 MILLIGRAM, BID (DOSE REDUCED)
     Route: 048
     Dates: start: 2019, end: 20191224
  3. CLOBAZAM. [Concomitant]
     Active Substance: CLOBAZAM
     Indication: EPILEPSY
     Dosage: 10 MILLIGRAM, QD (AT NIGHT)
     Route: 065
  4. EPILIM [Concomitant]
     Active Substance: VALPROATE SODIUM
     Indication: EPILEPSY
     Dosage: 1200 MILLIGRAM, QD
     Route: 065
  5. LEVETIRACETAM. [Concomitant]
     Active Substance: LEVETIRACETAM
     Indication: EPILEPSY
     Dosage: 2500 MILLIGRAM, QD
     Route: 065

REACTIONS (11)
  - Status epilepticus [Recovered/Resolved]
  - Abnormal behaviour [Not Recovered/Not Resolved]
  - Tooth abscess [Recovered/Resolved]
  - Generalised tonic-clonic seizure [Recovered/Resolved]
  - Cognitive disorder [Unknown]
  - Toothache [Recovered/Resolved]
  - Decreased appetite [Recovering/Resolving]
  - Liver function test abnormal [Recovered/Resolved]
  - Refusal of treatment by patient [Unknown]
  - Tooth extraction [Recovered/Resolved]
  - Product dose omission issue [Unknown]

NARRATIVE: CASE EVENT DATE: 201910
